FAERS Safety Report 8435504-8 (Version None)
Quarter: 2012Q2

REPORT INFORMATION
  Report Type: 
  Country: None (occurrence: None)
  Receive Date: 20120614
  Receipt Date: 20120607
  Transmission Date: 20120825
  Serious: Yes (Other)
  Sender: FDA-Public Use
  Company Number: US-PFIZER INC-2012137726

PATIENT
  Sex: Female
  Weight: 81.6 kg

DRUGS (2)
  1. DETROL LA [Suspect]
     Indication: CYSTITIS
     Dosage: 4 MG, 1X/DAY
     Route: 048
  2. DETROL LA [Suspect]
     Dosage: 4 MG, 1X/DAY
     Route: 048
     Dates: start: 20120602, end: 20120607

REACTIONS (3)
  - EXPIRED DRUG ADMINISTERED [None]
  - CYSTITIS [None]
  - PANIC REACTION [None]
